FAERS Safety Report 19874587 (Version 1)
Quarter: 2021Q3

REPORT INFORMATION
  Report Type: Spontaneous
  Country: GR (occurrence: GR)
  Receive Date: 20210922
  Receipt Date: 20210922
  Transmission Date: 20211014
  Serious: Yes (Other)
  Sender: FDA-Public Use
  Company Number: GR-ANIPHARMA-2021-GR-000028

PATIENT
  Age: 68 Year
  Sex: Female

DRUGS (1)
  1. CANDESARTAN CILEXETIL. [Suspect]
     Active Substance: CANDESARTAN CILEXETIL
     Indication: HYPERTENSION
     Dosage: 16 MG, BID FOR MANY YEARS (RECEIVED A THIRD TAB OF ATACAND 16MG)
     Route: 048

REACTIONS (4)
  - Epistaxis [Unknown]
  - Overdose [Unknown]
  - Eye haemorrhage [Unknown]
  - Drug ineffective [Unknown]
